FAERS Safety Report 9830840 (Version 2)
Quarter: 2014Q1

REPORT INFORMATION
  Report Type: Report from Study
  Country: CA (occurrence: CA)
  Receive Date: 20140120
  Receipt Date: 20140120
  Transmission Date: 20141002
  Serious: Yes (Other)
  Sender: FDA-Public Use
  Company Number: CA-ABBVIE-14P-028-1187018-00

PATIENT
  Sex: Female

DRUGS (1)
  1. HUMIRA [Suspect]
     Indication: CROHN^S DISEASE
     Route: 058
     Dates: start: 20080730, end: 201306

REACTIONS (6)
  - Menorrhagia [Unknown]
  - Ascites [Unknown]
  - Clear cell renal cell carcinoma [Unknown]
  - Arthralgia [Unknown]
  - Pelvic abscess [Unknown]
  - Flank pain [Unknown]
